FAERS Safety Report 16268140 (Version 1)
Quarter: 2019Q2

REPORT INFORMATION
  Report Type: Spontaneous
  Country: US (occurrence: US)
  Receive Date: 20190503
  Receipt Date: 20190503
  Transmission Date: 20190711
  Serious: No
  Sender: FDA-Public Use
  Company Number: US-GLAXOSMITHKLINE-US2019076908

PATIENT
  Age: 86 Year
  Sex: Female

DRUGS (1)
  1. ADVAIR DISKUS [Suspect]
     Active Substance: FLUTICASONE PROPIONATE\SALMETEROL XINAFOATE
     Indication: SECRETION DISCHARGE
     Dosage: 1 PUFF(S), 1D
     Route: 055

REACTIONS (3)
  - Underdose [Unknown]
  - Expired product administered [Unknown]
  - Product use in unapproved indication [Unknown]
